FAERS Safety Report 18893328 (Version 1)
Quarter: 2021Q1

REPORT INFORMATION
  Report Type: Spontaneous
  Country: SE (occurrence: SE)
  Receive Date: 20210215
  Receipt Date: 20210215
  Transmission Date: 20210420
  Serious: Yes (Disabling)
  Sender: FDA-Public Use
  Company Number: SE-TEVA-2021-SE-1879069

PATIENT
  Age: 66 Year
  Sex: Male

DRUGS (13)
  1. METHOTREXATE. [Concomitant]
     Active Substance: METHOTREXATE
     Dates: start: 201909, end: 2020
  2. SIFROL [Concomitant]
     Active Substance: PRAMIPEXOLE
     Dates: end: 2020
  3. ACETYLSALICYLIC ACID [Concomitant]
     Active Substance: ASPIRIN
     Dates: end: 2020
  4. NEOTIGASON [Suspect]
     Active Substance: ACITRETIN
     Indication: PSORIASIS
     Dosage: 30 MILLIGRAM DAILY;
     Route: 048
     Dates: start: 201703, end: 201811
  5. VITAMIN B12 [Concomitant]
     Active Substance: CYANOCOBALAMIN
     Dates: end: 2020
  6. ENALAPRIL [Concomitant]
     Active Substance: ENALAPRIL
     Dates: end: 2020
  7. METOPROLOL. [Concomitant]
     Active Substance: METOPROLOL
     Dates: end: 2020
  8. IKTORIVIL [Concomitant]
     Active Substance: CLONAZEPAM
     Dates: end: 2020
  9. FINASTERIDE. [Concomitant]
     Active Substance: FINASTERIDE
     Dates: end: 2020
  10. FOLINIC ACID [Concomitant]
     Active Substance: LEUCOVORIN
     Dates: start: 201909, end: 2020
  11. BUNDISARIN [Concomitant]
     Dates: end: 2020
  12. SIMIDON [Concomitant]
     Active Substance: SIMVASTATIN
     Dates: end: 2020
  13. GABAPENTIN. [Concomitant]
     Active Substance: GABAPENTIN
     Dates: end: 2020

REACTIONS (1)
  - Tooth loss [Not Recovered/Not Resolved]

NARRATIVE: CASE EVENT DATE: 201803
